FAERS Safety Report 8077785-9 (Version None)
Quarter: 2012Q1

REPORT INFORMATION
  Report Type: 
  Country: None (occurrence: None)
  Receive Date: 20120127
  Receipt Date: 20120126
  Transmission Date: 20120608
  Serious: Yes (Death)
  Sender: FDA-Public Use
  Company Number: DE-B.I. PHARMACEUTICALS,INC./RIDGEFIELD-2012-DE-00290DE

PATIENT

DRUGS (1)
  1. PRADAXA [Suspect]
     Dosage: 220 MG
     Dates: start: 20110101

REACTIONS (2)
  - CEREBROVASCULAR ACCIDENT [None]
  - NAUSEA [None]
